FAERS Safety Report 7822810-0 (Version None)
Quarter: 2011Q4

REPORT INFORMATION
  Report Type: 
  Country: None (occurrence: None)
  Receive Date: 20111018
  Receipt Date: 20110610
  Transmission Date: 20120403
  Serious: No
  Sender: FDA-Public Use
  Company Number: US-ASTRAZENECA-2011SE18726

PATIENT
  Age: 65 Year
  Sex: Female

DRUGS (2)
  1. SYMBICORT [Suspect]
     Indication: ASTHMA
     Dosage: 160/4.5 MCG TWO TIMES A DAY
     Route: 055
  2. SYMBICORT [Suspect]
     Dosage: 80/4.5 MCG TWO INHALATIONS TWO TIMES A DAY
     Route: 055

REACTIONS (2)
  - URINARY TRACT INFECTION [None]
  - ASTHMA [None]
